FAERS Safety Report 6157822-9 (Version None)
Quarter: 2009Q2

REPORT INFORMATION
  Report Type: 
  Country: None (occurrence: None)
  Receive Date: 20090414
  Receipt Date: 20090331
  Transmission Date: 20091009
  Serious: Yes (Hospitalization)
  Sender: FDA-Public Use
  Company Number: 2009186268

PATIENT
  Age: 55 Year
  Sex: Female

DRUGS (8)
  1. DALTEPARIN SODIUM [Suspect]
     Indication: LUNG NEOPLASM MALIGNANT
  2. AUGMENTIN '125' [Concomitant]
  3. DEXAMETHASONE TAB [Concomitant]
  4. OMEPRAZOLE [Concomitant]
  5. TEMAZEPAM [Concomitant]
  6. ORAMORPH SR [Concomitant]
  7. AMITRIPTYLINE HYDROCHLORIDE [Concomitant]
  8. ENOXAPARIN SODIUM [Concomitant]

REACTIONS (6)
  - BONE MARROW FAILURE [None]
  - FALL [None]
  - FIBRIN D DIMER INCREASED [None]
  - LOWER RESPIRATORY TRACT INFECTION [None]
  - PROTHROMBIN TIME PROLONGED [None]
  - THROMBOSIS [None]
